FAERS Safety Report 10152839 (Version 5)
Quarter: 2015Q2

REPORT INFORMATION
  Report Type: Spontaneous
  Country: US (occurrence: US)
  Receive Date: 20140505
  Receipt Date: 20150626
  Transmission Date: 20150821
  Serious: Yes (Death, Hospitalization, Other)
  Sender: FDA-Public Use
  Company Number: US-UCBSA-119982

PATIENT
  Age: 48 Year
  Sex: Male

DRUGS (2)
  1. CIMZIA [Suspect]
     Active Substance: CERTOLIZUMAB PEGOL
     Indication: CROHN^S DISEASE
     Dosage: 400 MG, EV 4 WEEKS
     Dates: start: 20140319, end: 201403
  2. CIMZIA [Suspect]
     Active Substance: CERTOLIZUMAB PEGOL
     Indication: OFF LABEL USE
     Dosage: 200 MG, EV 2 WEEKS(QOW)
     Dates: start: 20140329, end: 20140923

REACTIONS (5)
  - Off label use [Unknown]
  - Vomiting [Unknown]
  - Inappropriate schedule of drug administration [Unknown]
  - Neoplasm malignant [Fatal]
  - Abdominal pain upper [Unknown]

NARRATIVE: CASE EVENT DATE: 2014
